FAERS Safety Report 9347975 (Version 4)
Quarter: 2013Q3

REPORT INFORMATION
  Report Type: Report from Study
  Country: IT (occurrence: IT)
  Receive Date: 20130614
  Receipt Date: 20130816
  Transmission Date: 20140515
  Serious: Yes (Death)
  Sender: FDA-Public Use
  Company Number: IT-BAYER-2013-069118

PATIENT
  Age: 74 Year
  Sex: Male

DRUGS (3)
  1. SORAFENIB [Suspect]
     Indication: HEPATOCELLULAR CARCINOMA
     Dosage: 800 MG, QD
     Route: 048
     Dates: start: 20120710, end: 20120817
  2. ACETYLSALICYLATE LYSINE [Concomitant]
     Dosage: DAILY DOSE 75 MG
     Route: 048
  3. FLECTADOL [Concomitant]

REACTIONS (1)
  - Condition aggravated [Fatal]
